FAERS Safety Report 23815010 (Version 1)
Quarter: 2024Q2

REPORT INFORMATION
  Report Type: Spontaneous
  Country: RO (occurrence: RO)
  Receive Date: 20240503
  Receipt Date: 20240503
  Transmission Date: 20240716
  Serious: Yes (Life-Threatening, Other)
  Sender: FDA-Public Use
  Company Number: RO-ETON PHARMACEUTICALS, INC-2024ETO000091

PATIENT
  Age: 12 Year
  Sex: Female
  Weight: 45 kg

DRUGS (3)
  1. ALKINDI SPRINKLE [Suspect]
     Active Substance: HYDROCORTISONE
     Indication: Adrenogenital syndrome
     Dosage: 13.5 MG PER DAY, DIVIDED IN FOUR DOSES
     Route: 065
     Dates: start: 20240120
  2. ALKINDI SPRINKLE [Suspect]
     Active Substance: HYDROCORTISONE
     Dosage: 13.5 MG PER DAY, DIVIDED IN FOUR DOSES
     Route: 065
     Dates: start: 20240120
  3. FLUDROCORTISONE [Concomitant]
     Active Substance: FLUDROCORTISONE
     Indication: Product used for unknown indication
     Dosage: 0.1 MILLIGRAM
     Route: 065

REACTIONS (1)
  - Adrenocortical insufficiency acute [Recovering/Resolving]

NARRATIVE: CASE EVENT DATE: 20240327
